FAERS Safety Report 8473400-0 (Version None)
Quarter: 2012Q2

REPORT INFORMATION
  Report Type: 
  Country: None (occurrence: None)
  Receive Date: 20120628
  Receipt Date: 20120619
  Transmission Date: 20120825
  Serious: No
  Sender: FDA-Public Use
  Company Number: US-BIOGENIDEC-2012BI021951

PATIENT
  Age: 51 Year
  Sex: Female

DRUGS (2)
  1. GEBAUER ETHYL CHLORIDE [Concomitant]
     Indication: INJECTION SITE ANAESTHESIA
     Dates: start: 20120601
  2. AVONEX [Suspect]
     Indication: MULTIPLE SCLEROSIS
     Route: 030
     Dates: start: 20061011

REACTIONS (6)
  - TEMPERATURE INTOLERANCE [None]
  - ROAD TRAFFIC ACCIDENT [None]
  - INFLUENZA LIKE ILLNESS [None]
  - INTERVERTEBRAL DISC PROTRUSION [None]
  - INJECTION SITE HAEMORRHAGE [None]
  - SOMNOLENCE [None]
